FAERS Safety Report 9381750 (Version 1)
Quarter: 2013Q3

REPORT INFORMATION
  Report Type: Spontaneous
  Country: US (occurrence: US)
  Receive Date: 20130703
  Receipt Date: 20130703
  Transmission Date: 20140515
  Serious: No
  Sender: FDA-Public Use
  Company Number: US-BAYER-2013-081252

PATIENT
  Age: 70 Year
  Sex: Female
  Weight: 49 kg

DRUGS (1)
  1. ALEVE GELCAPS [Suspect]
     Indication: TOOTHACHE
     Dosage: UNK DF, UNK

REACTIONS (3)
  - Drug ineffective [None]
  - Insomnia [None]
  - Abdominal discomfort [None]
